FAERS Safety Report 14740946 (Version 1)
Quarter: 2018Q2

REPORT INFORMATION
  Report Type: Report from Study
  Country: ES (occurrence: ES)
  Receive Date: 20180410
  Receipt Date: 20180410
  Transmission Date: 20180711
  Serious: Yes (Life-Threatening, Hospitalization, Other)
  Sender: FDA-Public Use
  Company Number: ES-BRISTOL-MYERS SQUIBB COMPANY-BMS-2018-032921

PATIENT
  Age: 60 Year
  Sex: Female

DRUGS (3)
  1. NOLOTIL                            /00473101/ [Concomitant]
     Active Substance: METAMIZOLE\PROPOXYPHENE
     Indication: BACK PAIN
     Dosage: 2 G, UNK
     Route: 048
     Dates: start: 20171212
  2. FENTANILO                          /00174601/ [Concomitant]
     Active Substance: FENTANYL
     Indication: BACK PAIN
     Dosage: 12 G, UNK
     Route: 061
     Dates: start: 20171212
  3. NIVOLUMAB [Suspect]
     Active Substance: NIVOLUMAB
     Indication: LUNG NEOPLASM
     Dosage: 3 MG/KG, Q2WK
     Route: 042
     Dates: start: 20171116

REACTIONS (1)
  - Pulmonary embolism [Unknown]

NARRATIVE: CASE EVENT DATE: 20180108
